FAERS Safety Report 6280097-7 (Version None)
Quarter: 2009Q3

REPORT INFORMATION
  Report Type: 
  Country: None (occurrence: None)
  Receive Date: 20090723
  Receipt Date: 20090714
  Transmission Date: 20100115
  Serious: Yes (Other)
  Sender: FDA-Public Use
  Company Number: CA-GENENTECH-286504

PATIENT
  Age: 82 Year
  Sex: Male

DRUGS (2)
  1. LUCENTIS [Suspect]
     Indication: MACULAR DEGENERATION
     Route: 031
  2. LUCENTIS [Suspect]
     Dosage: UNK
     Route: 031
     Dates: start: 20090515

REACTIONS (3)
  - OEDEMA MOUTH [None]
  - TOOTH ABSCESS [None]
  - TOOTHACHE [None]
